FAERS Safety Report 5495682-X (Version None)
Quarter: 2007Q4

REPORT INFORMATION
  Report Type: 
  Country: None (occurrence: None)
  Receive Date: 20071018
  Receipt Date: 20070509
  Transmission Date: 20080405
  Serious: Yes (Other)
  Sender: FDA-Public Use
  Company Number: 2007013174

PATIENT
  Age: 34 Year
  Sex: Male

DRUGS (5)
  1. NEURONTIN [Suspect]
     Indication: NERVE INJURY
     Dosage: 1200 MG (600 MG, 2 IN 1 D), ORAL
     Route: 048
  2. SOMA [Concomitant]
  3. LEXAPRO [Concomitant]
  4. VALIUM [Concomitant]
  5. LORTAB [Concomitant]

REACTIONS (3)
  - DEPRESSION [None]
  - DRUG INEFFECTIVE [None]
  - SUICIDE ATTEMPT [None]
